FAERS Safety Report 16389257 (Version 1)
Quarter: 2019Q2

REPORT INFORMATION
  Report Type: Spontaneous
  Country: CN (occurrence: CN)
  Receive Date: 20190604
  Receipt Date: 20190604
  Transmission Date: 20190711
  Serious: Yes (Hospitalization, Other)
  Sender: FDA-Public Use
  Company Number: CN-PFIZER INC-2019230120

PATIENT
  Age: 71 Year
  Sex: Female

DRUGS (2)
  1. XUESHUANTONG [Concomitant]
     Active Substance: HERBALS
     Indication: CORONARY ARTERY DISEASE
     Dosage: 450 MG, 1X/DAY
     Route: 041
     Dates: start: 20190223, end: 20190225
  2. CELEBREX [Suspect]
     Active Substance: CELECOXIB
     Indication: OSTEOARTHRITIS
     Dosage: 0.2 G, 1X/DAY
     Route: 048
     Dates: start: 20190217, end: 20190325

REACTIONS (6)
  - Dermatitis [Recovering/Resolving]
  - Meniscus injury [Unknown]
  - Pruritus [Recovering/Resolving]
  - Rash maculo-papular [Recovering/Resolving]
  - Injury [Recovering/Resolving]
  - Pyrexia [Unknown]

NARRATIVE: CASE EVENT DATE: 20190224
